FAERS Safety Report 24655648 (Version 1)
Quarter: 2024Q4

REPORT INFORMATION
  Report Type: Other
  Country: US (occurrence: JP)
  Receive Date: 20241123
  Receipt Date: 20241123
  Transmission Date: 20250115
  Serious: Yes (Hospitalization)
  Sender: SAPTALIS PHARMACEUTICALS LLC
  Company Number: JP-Saptalis Pharmaceuticals LLC-2165708

PATIENT
  Age: 65 Year
  Sex: Female

DRUGS (2)
  1. LITHIUM CITRATE [Suspect]
     Active Substance: LITHIUM CITRATE
     Indication: Bipolar disorder
  2. CARBAMAZEPINE [Concomitant]
     Active Substance: CARBAMAZEPINE

REACTIONS (2)
  - Status epilepticus [Recovered/Resolved]
  - Toxicity to various agents [Recovered/Resolved]
